FAERS Safety Report 23547196 (Version 1)
Quarter: 2024Q1

REPORT INFORMATION
  Report Type: Report from Study
  Country: DE (occurrence: DE)
  Receive Date: 20240221
  Receipt Date: 20240221
  Transmission Date: 20240409
  Serious: Yes (Hospitalization, Other)
  Sender: FDA-Public Use
  Company Number: DE-002147023-NVSC2021DE156249

PATIENT
  Sex: Female

DRUGS (6)
  1. ETANERCEPT [Suspect]
     Active Substance: ETANERCEPT
     Indication: Axial spondyloarthritis
     Dosage: 50 MG, WEEKLY (SOLUTION FOR INJECTION)
     Route: 065
     Dates: start: 20180222
  2. IBUPROFEN [Suspect]
     Active Substance: IBUPROFEN
     Indication: Axial spondyloarthritis
     Dosage: 2400 MG, QD (7 DAYS PER WEEK)
     Route: 065
     Dates: start: 20201127, end: 20210810
  3. ERELZI [Suspect]
     Active Substance: ETANERCEPT-SZZS
     Indication: Axial spondyloarthritis
     Dosage: 50 MG, WEEKLY
     Route: 065
     Dates: start: 20180222
  4. CELECOXIB [Concomitant]
     Active Substance: CELECOXIB
     Dosage: 200 MG
     Route: 065
     Dates: start: 20160101
  5. CELECOXIB [Concomitant]
     Active Substance: CELECOXIB
     Dosage: 400 MG, QD (7 DAYS PER WEEK)
     Route: 065
     Dates: start: 20210811
  6. CELECOXIB [Concomitant]
     Active Substance: CELECOXIB
     Dosage: 400 MG, QW (7 DAYS)
     Route: 065
     Dates: start: 20210811

REACTIONS (17)
  - Spinal osteoarthritis [Unknown]
  - Condition aggravated [Unknown]
  - Sciatica [Recovered/Resolved]
  - Urge incontinence [Unknown]
  - Polyarthritis [Unknown]
  - Haemorrhoids [Unknown]
  - Polyuria [Unknown]
  - Spinal cord injury [Unknown]
  - Hiatus hernia [Unknown]
  - Pain [Unknown]
  - Osteoarthritis [Unknown]
  - Foot deformity [Recovered/Resolved]
  - COVID-19 [Unknown]
  - Localised infection [Unknown]
  - Arthralgia [Unknown]
  - Immunisation reaction [Unknown]
  - Synovial cyst [Unknown]

NARRATIVE: CASE EVENT DATE: 20210111
